FAERS Safety Report 4860954-6 (Version None)
Quarter: 2005Q4

REPORT INFORMATION
  Report Type: 
  Country: None (occurrence: None)
  Receive Date: 20051220
  Receipt Date: 20051209
  Transmission Date: 20060501
  Serious: Yes (Other)
  Sender: FDA-Public Use
  Company Number: CA-BRISTOL-MYERS SQUIBB COMPANY-13219670

PATIENT
  Age: 80 Year
  Sex: Female

DRUGS (16)
  1. TEQUIN [Suspect]
     Route: 048
  2. COLACE [Concomitant]
  3. COMBIVENT [Concomitant]
     Route: 055
  4. DIDROCAL [Concomitant]
  5. DILTIAZEM [Concomitant]
  6. ASPIRIN [Concomitant]
  7. ENSURE [Concomitant]
  8. FLOVENT [Concomitant]
     Route: 055
  9. HYDROCHLOROTHIAZIDE [Concomitant]
  10. LACTULOSE [Concomitant]
  11. POTASSIUM CHLORIDE [Concomitant]
  12. PREDNISONE TAB [Concomitant]
  13. RANITIDINE [Concomitant]
  14. SENOKOT [Concomitant]
  15. SYNTHROID [Concomitant]
  16. VITAMIN D [Concomitant]

REACTIONS (2)
  - CONVULSION [None]
  - HYPOGLYCAEMIA [None]
